FAERS Safety Report 5117253-7 (Version None)
Quarter: 2006Q3

REPORT INFORMATION
  Report Type: 
  Country: None (occurrence: None)
  Receive Date: 20060927
  Receipt Date: 20060927
  Transmission Date: 20061208
  Serious: Yes (Hospitalization)
  Sender: FDA-Public Use
  Company Number: None

PATIENT
  Sex: Male
  Weight: 90.7 kg

DRUGS (9)
  1. IRINOTECAN HCL [Suspect]
     Indication: GLIOBLASTOMA MULTIFORME
     Dosage: 325 MG /M2 DAY 1, 8, 22, 29 IV
     Route: 042
     Dates: start: 20060821, end: 20060826
  2. TEMODAR [Suspect]
     Indication: GLIOBLASTOMA MULTIFORME
     Dosage: 200 MG/M2 DAYS 1-5 PO
     Route: 048
     Dates: start: 20060821, end: 20060825
  3. DILANTIN [Concomitant]
  4. LEXAPRO [Concomitant]
  5. PHREMILIN [Concomitant]
  6. OXYCODONE HCL [Concomitant]
  7. DEXAMETHASONE TAB [Concomitant]
  8. KEPPRA [Concomitant]
  9. ZANTAC [Concomitant]

REACTIONS (6)
  - ASPARTATE AMINOTRANSFERASE INCREASED [None]
  - BLOOD ALKALINE PHOSPHATASE INCREASED [None]
  - DIARRHOEA [None]
  - HAEMOGLOBIN DECREASED [None]
  - HYPONATRAEMIA [None]
  - NEUTROPENIA [None]
